FAERS Safety Report 22115166 (Version 1)
Quarter: 2023Q1

REPORT INFORMATION
  Report Type: Spontaneous
  Country: US (occurrence: US)
  Receive Date: 20230320
  Receipt Date: 20230320
  Transmission Date: 20230418
  Serious: No
  Sender: FDA-Public Use
  Company Number: US-BRISTOL-MYERS SQUIBB COMPANY-2023-040184

PATIENT
  Sex: Male

DRUGS (2)
  1. ELIQUIS [Suspect]
     Active Substance: APIXABAN
     Indication: Pulmonary embolism
     Dosage: DOSE : UNAVAILABLE;     FREQ : UNAVAILABLE
  2. ELIQUIS [Suspect]
     Active Substance: APIXABAN
     Dosage: CHANGED HIS DOSE OF ELIQUIS TO 2.5MG STARTING ON 01-APR

REACTIONS (1)
  - Product dispensing error [Unknown]
